FAERS Safety Report 18746834 (Version 1)
Quarter: 2021Q1

REPORT INFORMATION
  Report Type: Spontaneous
  Country: US (occurrence: US)
  Receive Date: 20210115
  Receipt Date: 20210115
  Transmission Date: 20210419
  Serious: Yes (Hospitalization)
  Sender: FDA-Public Use
  Company Number: US-009507513-2101USA005619

PATIENT
  Age: 56 Year
  Sex: Male

DRUGS (4)
  1. RECARBRIO [Suspect]
     Active Substance: CILASTATIN\IMIPENEM ANHYDROUS\RELEBACTAM ANHYDROUS
     Indication: LOWER RESPIRATORY TRACT INFECTION
     Dosage: 500 MG IV EVERY 6 HOURS
     Route: 042
     Dates: start: 20201210, end: 20210108
  2. AMIKACIN. [Concomitant]
     Active Substance: AMIKACIN
  3. AMOXICILLIN. [Concomitant]
     Active Substance: AMOXICILLIN
  4. MEROPENEM. [Suspect]
     Active Substance: MEROPENEM
     Indication: LOWER RESPIRATORY TRACT INFECTION
     Dosage: UNK
     Dates: start: 202101

REACTIONS (3)
  - Product availability issue [Unknown]
  - Drug ineffective [Not Recovered/Not Resolved]
  - Product dose omission issue [Unknown]

NARRATIVE: CASE EVENT DATE: 202101
